FAERS Safety Report 4687278-4 (Version None)
Quarter: 2005Q2

REPORT INFORMATION
  Report Type: 
  Country: None (occurrence: None)
  Receive Date: 20050608
  Receipt Date: 20050527
  Transmission Date: 20051028
  Serious: Yes (Other)
  Sender: FDA-Public Use
  Company Number: 2005081470

PATIENT
  Age: 62 Year
  Sex: Female
  Weight: 73.9363 kg

DRUGS (4)
  1. CELEBREX [Suspect]
     Indication: PSORIATIC ARTHROPATHY
     Dosage: 400 MG (200 MG, 2 IN 1 D), ORAL
     Route: 048
     Dates: end: 20040101
  2. SYNTHROID [Concomitant]
  3. ATENOLOL [Concomitant]
  4. HYDROCHLOROTHIAZIDE [Concomitant]

REACTIONS (3)
  - IMPAIRED HEALING [None]
  - ROAD TRAFFIC ACCIDENT [None]
  - TIBIA FRACTURE [None]
